FAERS Safety Report 4924918-6 (Version None)
Quarter: 2006Q1

REPORT INFORMATION
  Report Type: 
  Country: None (occurrence: None)
  Receive Date: 20060222
  Receipt Date: 20060215
  Transmission Date: 20060701
  Serious: Yes (Other)
  Sender: FDA-Public Use
  Company Number: 218897

PATIENT
  Sex: Male

DRUGS (7)
  1. XOLAIR [Suspect]
     Indication: ALLERGIC GRANULOMATOUS ANGIITIS
     Dosage: SEE IMAGE
     Dates: start: 20040201
  2. XOLAIR [Suspect]
     Indication: ALLERGIC GRANULOMATOUS ANGIITIS
     Dosage: SEE IMAGE
     Dates: start: 20051019
  3. PREDNISONE TAB [Concomitant]
  4. FOSAMAX [Concomitant]
  5. ALLEGRA [Concomitant]
  6. FORADIL [Concomitant]
  7. PULMICORT [Concomitant]

REACTIONS (9)
  - ARTHRALGIA [None]
  - ASTHENIA [None]
  - DIFFICULTY IN WALKING [None]
  - DYSPNOEA [None]
  - EAR PAIN [None]
  - EYE PAIN [None]
  - INSOMNIA [None]
  - MYALGIA [None]
  - NAUSEA [None]
